FAERS Safety Report 9850412 (Version 2)
Quarter: 2014Q1

REPORT INFORMATION
  Report Type: Spontaneous
  Country: DE (occurrence: DE)
  Receive Date: 20140128
  Receipt Date: 20140205
  Transmission Date: 20141002
  Serious: Yes (Death, Hospitalization)
  Sender: FDA-Public Use
  Company Number: PHHY2014DE009894

PATIENT
  Sex: 0

DRUGS (2)
  1. CLOZAPINE [Suspect]
     Dosage: UNK
  2. MIRTAZAPINE [Concomitant]
     Dosage: 30 MG, UNK

REACTIONS (2)
  - Fall [Fatal]
  - Leukopenia [Recovering/Resolving]
